FAERS Safety Report 10233428 (Version 3)
Quarter: 2016Q1

REPORT INFORMATION
  Report Type: Report from Study
  Country: DE (occurrence: DE)
  Receive Date: 20140612
  Receipt Date: 20160112
  Transmission Date: 20160525
  Serious: Yes (Hospitalization)
  Sender: FDA-Public Use
  Company Number: DE-TEVA-486604GER

PATIENT
  Age: 8 Decade
  Sex: Male
  Weight: 78 kg

DRUGS (12)
  1. LONQUEX [Suspect]
     Active Substance: LIPEGFILGRASTIM
     Indication: NEUTROPENIA
     Dosage: LAST DOSE PRIOR AE: 14-MAY-2014
     Dates: start: 20140502, end: 20140705
  2. VINCRISTINE [Suspect]
     Active Substance: VINCRISTINE
     Indication: CHRONIC LYMPHOCYTIC LEUKAEMIA
     Dosage: LAST DOSE PRIOR AE: 13-MAY-2014
     Route: 042
     Dates: start: 20140425
  3. TAZOBAC [Concomitant]
     Active Substance: PIPERACILLIN SODIUM\TAZOBACTAM SODIUM
     Indication: FEBRILE NEUTROPENIA
     Dosage: 13.5 MILLIGRAM DAILY;
     Route: 048
     Dates: end: 20140731
  4. ROCEPHIN [Concomitant]
     Active Substance: CEFTRIAXONE SODIUM
     Indication: FEBRILE NEUTROPENIA
     Dosage: 4 GRAM DAILY;
     Route: 048
     Dates: end: 20140731
  5. PREDNISONE. [Suspect]
     Active Substance: PREDNISONE
     Indication: CHRONIC LYMPHOCYTIC LEUKAEMIA
     Dosage: LAST DOSE PRIOR AE: 17-MAY-2014
     Route: 048
     Dates: start: 20140425, end: 20140517
  6. RITUXIMAB [Suspect]
     Active Substance: RITUXIMAB
     Indication: CHRONIC LYMPHOCYTIC LEUKAEMIA
     Dosage: LAST DOSE PRIOR AE: 13-MAY-2014
     Route: 042
     Dates: start: 20140429
  7. DOXORUBICIN [Suspect]
     Active Substance: DOXORUBICIN
     Indication: CHRONIC LYMPHOCYTIC LEUKAEMIA
     Dosage: LAST DOSE PRIOR AE: 13-MAY-2014
     Route: 042
     Dates: start: 20140429
  8. TOREM [Concomitant]
     Active Substance: TORSEMIDE
     Indication: HYPERURICAEMIA
     Dosage: 5 MILLIGRAM DAILY;
     Route: 048
     Dates: end: 20140731
  9. HALDOL [Concomitant]
     Active Substance: HALOPERIDOL
     Indication: MENTAL DISORDER
     Dosage: 4 MILLIGRAM DAILY;
     Route: 048
     Dates: end: 20140731
  10. DIPIPERON [Concomitant]
     Active Substance: PIPAMPERONE
     Indication: MENTAL DISORDER
     Dosage: 100 MILLIGRAM DAILY; 20MG-20MG-20MG-40MG
     Route: 048
     Dates: end: 20140731
  11. CYCLOPHOSPHAMIDE. [Suspect]
     Active Substance: CYCLOPHOSPHAMIDE
     Indication: CHRONIC LYMPHOCYTIC LEUKAEMIA
     Dosage: LAST DOSE PRIOR AE: 13-MAY-2014
     Route: 042
     Dates: start: 20140429
  12. ALLOPURINOL. [Concomitant]
     Active Substance: ALLOPURINOL
     Indication: HYPERURICAEMIA
     Dosage: 300 MILLIGRAM DAILY;
     Route: 048
     Dates: end: 20140731

REACTIONS (2)
  - Pancytopenia [Recovered/Resolved]
  - Infection [Recovered/Resolved]

NARRATIVE: CASE EVENT DATE: 20140520
